FAERS Safety Report 8172861-4 (Version None)
Quarter: 2012Q1

REPORT INFORMATION
  Report Type: 
  Country: None (occurrence: None)
  Receive Date: 20120223
  Receipt Date: 20120210
  Transmission Date: 20120608
  Serious: Yes (Other)
  Sender: FDA-Public Use
  Company Number: TPA2011A05934

PATIENT
  Age: 50 Year
  Sex: Male
  Weight: 91.6266 kg

DRUGS (2)
  1. ACTOS [Suspect]
     Indication: TYPE 2 DIABETES MELLITUS
  2. ACTOS [Suspect]
     Indication: TYPE 2 DIABETES MELLITUS
     Dosage: 1 IN 1 D, PER ORAL
     Route: 048
     Dates: start: 20080601, end: 20110601

REACTIONS (4)
  - METASTASES TO LYMPH NODES [None]
  - BLADDER CANCER [None]
  - LIVER DISORDER [None]
  - MYOCARDIAL INFARCTION [None]
